FAERS Safety Report 7670748-4 (Version None)
Quarter: 2011Q3

REPORT INFORMATION
  Report Type: 
  Country: None (occurrence: None)
  Receive Date: 20110809
  Receipt Date: 20110728
  Transmission Date: 20111222
  Serious: No
  Sender: FDA-Public Use
  Company Number: GB-DENTSPLY-2011-0067-EUR

PATIENT
  Age: 62 Year
  Sex: Male

DRUGS (2)
  1. ORAQIX [Suspect]
     Indication: DENTAL OPERATION
     Route: 004
     Dates: start: 20110708, end: 20110708
  2. PREDNISOLONE [Concomitant]
     Indication: BRONCHIECTASIS
     Route: 048

REACTIONS (6)
  - NASAL OEDEMA [None]
  - HYPERHIDROSIS [None]
  - VOMITING [None]
  - HYPOTENSION [None]
  - OXYGEN SATURATION DECREASED [None]
  - LIP SWELLING [None]
